FAERS Safety Report 5291347-8 (Version None)
Quarter: 2007Q2

REPORT INFORMATION
  Report Type: 
  Country: None (occurrence: None)
  Receive Date: 20070409
  Receipt Date: 20070330
  Transmission Date: 20071010
  Serious: Yes (Life-Threatening)
  Sender: FDA-Public Use
  Company Number: GB-MERCK-0704GBR00004

PATIENT
  Age: 56 Year
  Sex: Female

DRUGS (5)
  1. ZETIA [Suspect]
     Route: 048
     Dates: start: 20070307
  2. DICLOFENAC [Concomitant]
     Route: 065
     Dates: start: 20030101
  3. LISINOPRIL [Concomitant]
     Route: 065
     Dates: start: 20061201
  4. PRIMAXIN [Concomitant]
     Route: 065
  5. ATORVASTATIN CALCIUM [Concomitant]
     Route: 065
     Dates: start: 20060101

REACTIONS (4)
  - AGGRESSION [None]
  - DEPRESSION [None]
  - FATIGUE [None]
  - SUICIDAL BEHAVIOUR [None]
